FAERS Safety Report 23358416 (Version 1)
Quarter: 2024Q1

REPORT INFORMATION
  Report Type: Spontaneous
  Country: US (occurrence: US)
  Receive Date: 20240102
  Receipt Date: 20240102
  Transmission Date: 20240410
  Serious: Yes (Other)
  Sender: FDA-Public Use
  Company Number: US-FreseniusKabi-FK202400045

PATIENT
  Age: 49 Year
  Sex: Female

DRUGS (1)
  1. DEXMEDETOMIDINE [Suspect]
     Active Substance: DEXMEDETOMIDINE
     Indication: Agitation
     Dosage: FORM: INFUSION

REACTIONS (3)
  - Torsade de pointes [Unknown]
  - Cardiac arrest [Unknown]
  - Ventricular fibrillation [Unknown]
